FAERS Safety Report 24458812 (Version 1)
Quarter: 2024Q4

REPORT INFORMATION
  Report Type: Spontaneous
  Country: MX (occurrence: MX)
  Receive Date: 20241018
  Receipt Date: 20241018
  Transmission Date: 20250114
  Serious: No
  Sender: ROCHE
  Company Number: MX-ROCHE-3526796

PATIENT
  Age: 60 Year
  Sex: Female
  Weight: 51.5 kg

DRUGS (4)
  1. RITUXIMAB [Suspect]
     Active Substance: RITUXIMAB
     Indication: Neuromyelitis optica spectrum disorder
     Route: 042
     Dates: start: 2020
  2. RITUXIMAB [Suspect]
     Active Substance: RITUXIMAB
     Dosage: LAST APPLICATION IN /JAN/2024
     Route: 042
     Dates: start: 2023
  3. GABAPENTIN [Concomitant]
     Active Substance: GABAPENTIN
  4. DULOXETINE [Concomitant]
     Active Substance: DULOXETINE

REACTIONS (2)
  - Off label use [Unknown]
  - No adverse event [Unknown]

NARRATIVE: CASE EVENT DATE: 20200101
